FAERS Safety Report 11507227 (Version 3)
Quarter: 2017Q3

REPORT INFORMATION
  Report Type: Report from Study
  Country: None (occurrence: US)
  Receive Date: 20150915
  Receipt Date: 20170920
  Transmission Date: 20171127
  Serious: Yes (Other)
  Sender: FDA-Public Use
  Company Number: US-ABBVIE-15K-163-1460843-00

PATIENT
  Age: 24 Year
  Sex: Female
  Weight: 93.07 kg

DRUGS (2)
  1. HUMIRA [Suspect]
     Active Substance: ADALIMUMAB
     Indication: PSORIASIS
     Route: 058
     Dates: start: 20150226, end: 201508
  2. HUMIRA [Suspect]
     Active Substance: ADALIMUMAB
     Route: 058
     Dates: start: 201706, end: 201707

REACTIONS (12)
  - Fear of injection [Recovered/Resolved]
  - Hypoaesthesia [Unknown]
  - Headache [Not Recovered/Not Resolved]
  - Live birth [Unknown]
  - Pain [Recovered/Resolved]
  - Intracranial aneurysm [Recovered/Resolved]
  - Inappropriate schedule of drug administration [Recovered/Resolved]
  - Blood cholesterol increased [Not Recovered/Not Resolved]
  - Staphylococcal infection [Recovered/Resolved]
  - Exposure during pregnancy [Unknown]
  - Prolonged labour [Recovered/Resolved]
  - Injection site pain [Recovering/Resolving]

NARRATIVE: CASE EVENT DATE: 201508
